FAERS Safety Report 13250636 (Version 1)
Quarter: 2017Q1

REPORT INFORMATION
  Report Type: Spontaneous
  Country: CA (occurrence: CA)
  Receive Date: 20170219
  Receipt Date: 20170219
  Transmission Date: 20170428
  Serious: Yes (Other)
  Sender: FDA-Public Use
  Company Number: CA-ROCHE-1892580

PATIENT
  Sex: Female

DRUGS (1)
  1. HERCEPTIN [Suspect]
     Active Substance: TRASTUZUMAB
     Indication: PRODUCT USED FOR UNKNOWN INDICATION
     Route: 042

REACTIONS (14)
  - Nausea [Unknown]
  - Peripheral swelling [Unknown]
  - Palpitations [Unknown]
  - Sensory disturbance [Unknown]
  - Activities of daily living impaired [Unknown]
  - Crying [Unknown]
  - Myalgia [Unknown]
  - Hyperhidrosis [Unknown]
  - Diarrhoea [Unknown]
  - Chills [Unknown]
  - Dizziness [Unknown]
  - Abdominal pain upper [Unknown]
  - Sensation of foreign body [Unknown]
  - Influenza like illness [Unknown]
